FAERS Safety Report 4624829-X (Version None)
Quarter: 2005Q2

REPORT INFORMATION
  Report Type: 
  Country: None (occurrence: None)
  Receive Date: 20050401
  Receipt Date: 20050323
  Transmission Date: 20051028
  Serious: Yes (Hospitalization, Other)
  Sender: FDA-Public Use
  Company Number: NSADSS2002042054

PATIENT
  Sex: Male

DRUGS (7)
  1. REMICADE [Suspect]
     Route: 041
  2. REMICADE [Suspect]
     Indication: RHEUMATOID ARTHRITIS
     Route: 041
  3. METHOTREXATE [Concomitant]
  4. FOLIC ACID [Concomitant]
  5. LOPRESSOR [Concomitant]
  6. ALTACE [Concomitant]
  7. NOVASEN [Concomitant]

REACTIONS (8)
  - CARDIAC DISORDER [None]
  - CEREBROVASCULAR ACCIDENT [None]
  - DISEASE PROGRESSION [None]
  - JOINT SWELLING [None]
  - LUNG DISORDER [None]
  - PAIN [None]
  - PULMONARY EMBOLISM [None]
  - THERAPEUTIC RESPONSE DECREASED [None]
